FAERS Safety Report 12449552 (Version 3)
Quarter: 2017Q1

REPORT INFORMATION
  Report Type: Report from Study
  Country: FR (occurrence: FR)
  Receive Date: 20160609
  Receipt Date: 20170202
  Transmission Date: 20170428
  Serious: Yes (Hospitalization, Disabling)
  Sender: FDA-Public Use
  Company Number: FR-ROCHE-1722308

PATIENT
  Age: 76 Year
  Sex: Male
  Weight: 63 kg

DRUGS (10)
  1. ALEPSAL (FRANCE) [Concomitant]
     Active Substance: CAFFEINE\PHENOBARBITAL
     Indication: EPILEPSY
     Route: 048
     Dates: start: 1979
  2. KARDEGIC [Concomitant]
     Active Substance: ASPIRIN LYSINE
     Indication: HYPERTENSION
     Route: 048
  3. FLUCONAZOLE. [Concomitant]
     Active Substance: FLUCONAZOLE
     Indication: MUCOSAL INFLAMMATION
     Route: 048
     Dates: start: 20160309
  4. ATEZOLIZUMAB [Suspect]
     Active Substance: ATEZOLIZUMAB
     Indication: BLADDER TRANSITIONAL CELL CARCINOMA
     Dosage: DATE OF MOST RECENT DOSE (1200 MG) 17/FEB/2016.
     Route: 042
     Dates: start: 20160104
  5. OFLOCET [Concomitant]
     Active Substance: OFLOXACIN
     Indication: PYREXIA
     Route: 048
     Dates: start: 20160114, end: 20160117
  6. ROCEPHINE [Concomitant]
     Active Substance: CEFTRIAXONE SODIUM
     Indication: LUNG DISORDER
     Route: 042
     Dates: start: 20160304, end: 20160314
  7. CEFIXIME. [Concomitant]
     Active Substance: CEFIXIME
     Indication: URINARY TRACT INFECTION
     Route: 048
     Dates: start: 201603, end: 201603
  8. LASILIX [Concomitant]
     Active Substance: FUROSEMIDE
     Indication: HYPERTENSION
     Route: 048
     Dates: start: 20160312, end: 20160315
  9. PANTOPRAZOLE [Concomitant]
     Active Substance: PANTOPRAZOLE SODIUM
     Indication: PROPHYLAXIS
     Route: 048
     Dates: start: 20160303
  10. INNOHEP [Concomitant]
     Active Substance: TINZAPARIN SODIUM
     Indication: PULMONARY EMBOLISM
     Route: 058
     Dates: start: 201512

REACTIONS (2)
  - Myositis [Recovered/Resolved]
  - Hepatocellular injury [Recovered/Resolved]

NARRATIVE: CASE EVENT DATE: 20160119
